FAERS Safety Report 8264886-5 (Version None)
Quarter: 2012Q2

REPORT INFORMATION
  Report Type: 
  Country: None (occurrence: None)
  Receive Date: 20120406
  Receipt Date: 20120328
  Transmission Date: 20120825
  Serious: Yes (Hospitalization, Other)
  Sender: FDA-Public Use
  Company Number: SE-JNJFOC-20120314629

PATIENT
  Age: 60 Year
  Sex: Female

DRUGS (6)
  1. HUMIRA [Suspect]
     Indication: PSORIATIC ARTHROPATHY
     Route: 050
  2. ENALAPRIL MALEATE [Concomitant]
     Route: 065
  3. REMICADE [Suspect]
     Indication: PSORIATIC ARTHROPATHY
     Route: 042
  4. ENBREL [Suspect]
     Indication: PSORIATIC ARTHROPATHY
     Route: 058
     Dates: start: 20090101, end: 20090923
  5. ORUDIS E [Concomitant]
     Dosage: SLOW RELEASE
     Route: 065
  6. METHOTREXATE [Concomitant]
     Route: 065

REACTIONS (9)
  - STIFF PERSON SYNDROME [None]
  - MOVEMENT DISORDER [None]
  - CSF OLIGOCLONAL BAND PRESENT [None]
  - ANTI-GAD ANTIBODY POSITIVE [None]
  - GAIT DISTURBANCE [None]
  - MUSCULOSKELETAL STIFFNESS [None]
  - MUSCLE SPASMS [None]
  - MUSCULAR WEAKNESS [None]
  - BACK PAIN [None]
